FAERS Safety Report 20410298 (Version 2)
Quarter: 2022Q1

REPORT INFORMATION
  Report Type: Spontaneous
  Country: US (occurrence: US)
  Receive Date: 20220201
  Receipt Date: 20220317
  Transmission Date: 20220424
  Serious: No
  Sender: FDA-Public Use
  Company Number: US-BAYER-2022A013917

PATIENT
  Age: 22 Year
  Sex: Female
  Weight: 98 kg

DRUGS (3)
  1. KYLEENA [Suspect]
     Active Substance: LEVONORGESTREL
     Dosage: 17.5?G/DAY
     Route: 015
     Dates: start: 20210706, end: 20220125
  2. GARDISIL [Concomitant]
     Dosage: UNK
  3. VITAMIN D NOS [Concomitant]
     Active Substance: VITAMIN D NOS

REACTIONS (8)
  - Procedural pain [None]
  - Amenorrhoea [None]
  - Depression [None]
  - Anxiety [None]
  - Hyperaesthesia [None]
  - Rash [None]
  - Mood swings [None]
  - Premenstrual syndrome [Unknown]

NARRATIVE: CASE EVENT DATE: 20210101
